FAERS Safety Report 5725964-5 (Version None)
Quarter: 2008Q2

REPORT INFORMATION
  Report Type: 
  Country: None (occurrence: None)
  Receive Date: 20080501
  Receipt Date: 20080501
  Transmission Date: 20081010
  Serious: No
  Sender: FDA-Public Use
  Company Number: None

PATIENT
  Age: 0 Year
  Sex: Female

DRUGS (1)
  1. AMOXICILLIN [Suspect]
     Dates: start: 20060429, end: 20060501

REACTIONS (14)
  - BLOOD PRESSURE SYSTOLIC DECREASED [None]
  - CONVULSION [None]
  - CYTOLYTIC HEPATITIS [None]
  - DEHYDRATION [None]
  - HEPATIC ATROPHY [None]
  - HEPATIC FAILURE [None]
  - HYPOTENSION [None]
  - HYPOTHERMIA [None]
  - HYPOXIA [None]
  - LIVER INJURY [None]
  - MENTAL STATUS CHANGES [None]
  - MULTI-ORGAN FAILURE [None]
  - PNEUMOTHORAX [None]
  - TOXIC EPIDERMAL NECROLYSIS [None]
